FAERS Safety Report 5974273-8 (Version None)
Quarter: 2008Q4

REPORT INFORMATION
  Report Type: 
  Country: None (occurrence: None)
  Receive Date: 20081201
  Receipt Date: 20081119
  Transmission Date: 20090506
  Serious: Yes (Life-Threatening, Hospitalization)
  Sender: FDA-Public Use
  Company Number: IE-ALLERGAN-0815209US

PATIENT
  Sex: Female

DRUGS (4)
  1. TROSPIUM CHLORIDE [Suspect]
     Indication: DRUG USE FOR UNKNOWN INDICATION
     Dosage: 20 MG, BID
     Route: 048
  2. AULIN [Suspect]
     Indication: OSTEOARTHRITIS
     Dosage: 100 MG, BID
     Route: 048
     Dates: start: 20060301, end: 20061001
  3. LOSARTAN POTASSIUM [Suspect]
     Indication: DRUG USE FOR UNKNOWN INDICATION
     Dosage: 50 MG, BID
     Route: 048
  4. DIAZEPAM [Suspect]
     Indication: DRUG USE FOR UNKNOWN INDICATION
     Dosage: 2 MG, BID
     Route: 048

REACTIONS (1)
  - ACUTE HEPATIC FAILURE [None]
